FAERS Safety Report 13449933 (Version 1)
Quarter: 2017Q2

REPORT INFORMATION
  Report Type: Spontaneous
  Country: None (occurrence: US)
  Receive Date: 20170417
  Receipt Date: 20170417
  Transmission Date: 20170830
  Serious: No
  Sender: FDA-Public Use
  Company Number: US-BION-20160307

PATIENT
  Age: 77 Year
  Sex: Female
  Weight: 102.06 kg

DRUGS (3)
  1. PRESCRIBED MEDICATION FOR CHOLESTEROL [Concomitant]
  2. PRESCRIBED MEDICATION FOR BLOOD PRESSURE [Concomitant]
  3. ALEVE [Suspect]
     Active Substance: NAPROXEN SODIUM
     Indication: ARTHRALGIA
     Dosage: 2 DSF AS NEEDED
     Route: 048

REACTIONS (4)
  - Vomiting [Recovered/Resolved]
  - Product physical issue [Unknown]
  - Nausea [Recovered/Resolved]
  - Poor quality drug administered [Unknown]

NARRATIVE: CASE EVENT DATE: 20160714
